FAERS Safety Report 23715022 (Version 1)
Quarter: 2024Q2

REPORT INFORMATION
  Report Type: Other
  Country: FR (occurrence: None)
  Receive Date: 20240406
  Receipt Date: 20240406
  Transmission Date: 20240716
  Serious: Yes (Other)
  Sender: FDA-Public Use
  Company Number: FR-ROCHE-3536471

PATIENT

DRUGS (1)
  1. RITUXIMAB [Suspect]
     Active Substance: RITUXIMAB
     Indication: Pemphigus
     Route: 065

REACTIONS (5)
  - Acute coronary syndrome [Unknown]
  - Anaphylactoid reaction [Unknown]
  - Pyelonephritis [Unknown]
  - Pneumonia [Unknown]
  - Pleural infection [Unknown]
